FAERS Safety Report 22026254 (Version 1)
Quarter: 2023Q1

REPORT INFORMATION
  Report Type: Spontaneous
  Country: TW (occurrence: None)
  Receive Date: 20230223
  Receipt Date: 20230223
  Transmission Date: 20230418
  Serious: Yes (Other)
  Sender: FDA-Public Use
  Company Number: TW-ROCHE-3291183

PATIENT
  Sex: Male

DRUGS (11)
  1. MABTHERA [Suspect]
     Active Substance: RITUXIMAB
     Indication: Mantle cell lymphoma
     Dosage: VCR-CAP 4 CYCLES WITH BORTEZOMIB 12 CYCLES
     Route: 065
     Dates: start: 20180131, end: 20180503
  2. MABTHERA [Suspect]
     Active Substance: RITUXIMAB
     Dosage: SALVAGE CHEMOTHERAPY WITH R-DHAOX 3 CYCLES
     Route: 065
     Dates: start: 20210115, end: 20210311
  3. MABTHERA [Suspect]
     Active Substance: RITUXIMAB
     Dosage: R-ESHAP
     Route: 065
     Dates: start: 20210420
  4. MABTHERA [Suspect]
     Active Substance: RITUXIMAB
     Dosage: R- BEAM
     Route: 065
     Dates: start: 20210622
  5. BORTEZOMIB [Concomitant]
     Active Substance: BORTEZOMIB
     Indication: Mantle cell lymphoma
     Dosage: 1ST SYSTEMIC TREATMENT, VCR-CAP 4 CYCLES WITH BORTEZOMIB 12 CYCLES
     Dates: start: 20180131, end: 20180503
  6. CYCLOPHOSPHAMIDE\DOXORUBICIN [Concomitant]
     Active Substance: CYCLOPHOSPHAMIDE\DOXORUBICIN
     Indication: Mantle cell lymphoma
     Dosage: 1ST SYSTEMIC TREATMENT, VCR-CAP 4 CYCLES WITH BORTEZOMIB 12 CYCLES
     Dates: start: 20180131, end: 20180503
  7. PREDNISONE [Concomitant]
     Active Substance: PREDNISONE
     Indication: Mantle cell lymphoma
     Dosage: 1ST SYSTEMIC TREATMENT, VCR-CAP 4 CYCLES WITH BORTEZOMIB 12 CYCLES
     Dates: start: 20180131, end: 20180503
  8. IBRUTINIB [Concomitant]
     Active Substance: IBRUTINIB
     Indication: Mantle cell lymphoma
     Dosage: 3RD LINE SYSTEMIC TREATMENT, IBRUTINIB MONOTHERAPY
     Dates: start: 20190820, end: 20210101
  9. CYTARABINE;DEXAMETHASONE;OXALIPLATIN [Concomitant]
     Indication: Mantle cell lymphoma
     Dosage: 4TH LINE SYSTEMIC TREATMENT, SALVAGE CHEMOTHERAPY WITH R-DHAOX 3 CYCLES
     Dates: start: 20210115, end: 20210311
  10. CISPLATIN\CYTARABINE\ETOPOSIDE\METHYLPREDNISOLONE (ESHAP) [Concomitant]
     Active Substance: CISPLATIN\CYTARABINE\ETOPOSIDE\METHYLPREDNISOLONE (ESHAP)
     Indication: Mantle cell lymphoma
     Dosage: R-ESHAP WITH PBSC COLLECTION
     Dates: start: 20210420
  11. BEAM [Concomitant]
     Active Substance: SODIUM FLUORIDE
     Indication: Mantle cell lymphoma
     Dosage: S/P CONDITIONING CHEMOTHERAPY WITH R-BEAM AND AUTOLOGOUS HSCT DAY 0
     Dates: start: 20210622

REACTIONS (2)
  - Mantle cell lymphoma [Unknown]
  - Lymphoma [Unknown]
